FAERS Safety Report 6521080-3 (Version None)
Quarter: 2009Q4

REPORT INFORMATION
  Report Type: 
  Country: None (occurrence: None)
  Receive Date: 20091229
  Receipt Date: 20091221
  Transmission Date: 20100525
  Serious: Yes (Other)
  Sender: FDA-Public Use
  Company Number: GB-PFIZER INC-2008098818

PATIENT
  Age: 36 Year
  Sex: Female
  Weight: 74 kg

DRUGS (3)
  1. CHAMPIX [Suspect]
     Dosage: 1 MG, 2X/DAY
     Route: 048
     Dates: start: 20081016, end: 20081108
  2. BETAHISTINE HYDROCHLORIDE [Concomitant]
  3. EZETIMIBE [Concomitant]

REACTIONS (5)
  - AGITATED DEPRESSION [None]
  - ANGER [None]
  - EMOTIONAL DISTRESS [None]
  - IRRITABILITY [None]
  - TEARFULNESS [None]
